FAERS Safety Report 21634953 (Version 1)
Quarter: 2022Q4

REPORT INFORMATION
  Report Type: Spontaneous
  Country: US (occurrence: None)
  Receive Date: 20221123
  Receipt Date: 20221123
  Transmission Date: 20230113
  Serious: Yes (Hospitalization)
  Sender: FDA-Public Use
  Company Number: None

PATIENT
  Age: 72 Year
  Sex: Male
  Weight: 102 kg

DRUGS (6)
  1. TROSPIUM CHLORIDE [Suspect]
     Active Substance: TROSPIUM CHLORIDE
     Indication: Urinary incontinence
     Dosage: FREQUENCY : TWICE A DAY;?
     Route: 048
  2. BCG live 50mg [Concomitant]
  3. DULOXETINE [Concomitant]
     Active Substance: DULOXETINE
  4. norco 5/325 generic [Concomitant]
  5. levothyroxine 100mcg daily [Concomitant]
  6. bactrim ds generic [Concomitant]

REACTIONS (4)
  - Encephalopathy [None]
  - Hyponatraemia [None]
  - Body temperature increased [None]
  - Adverse drug reaction [None]

NARRATIVE: CASE EVENT DATE: 20221121
